FAERS Safety Report 7079341-8 (Version None)
Quarter: 2010Q4

REPORT INFORMATION
  Report Type: 
  Country: None (occurrence: None)
  Receive Date: 20101022
  Receipt Date: 20101013
  Transmission Date: 20110411
  Serious: Yes (Hospitalization)
  Sender: FDA-Public Use
  Company Number: 2010SP054778

PATIENT
  Age: 29 Year
  Sex: Female

DRUGS (1)
  1. NUVARING [Suspect]
     Indication: PRODUCT USED FOR UNKNOWN INDICATION
     Dosage: VAG
     Route: 067

REACTIONS (3)
  - OVARIAN CYST [None]
  - PAIN [None]
  - UTERINE CONTRACTIONS ABNORMAL [None]
